FAERS Safety Report 5945618-X (Version None)
Quarter: 2008Q4

REPORT INFORMATION
  Report Type: 
  Country: None (occurrence: None)
  Receive Date: 20081107
  Receipt Date: 20081029
  Transmission Date: 20090506
  Serious: Yes (Other)
  Sender: FDA-Public Use
  Company Number: JP-PFIZER INC-2008091386

PATIENT
  Age: 12 Year
  Sex: Male

DRUGS (6)
  1. ADRIACIN [Suspect]
     Indication: RHABDOMYOSARCOMA
     Dates: start: 19960601
  2. ETOPOSIDE [Suspect]
     Indication: RHABDOMYOSARCOMA
     Dates: start: 19960601
  3. CISPLATIN [Suspect]
     Indication: RHABDOMYOSARCOMA
     Dates: start: 19960601
  4. ONCOVIN [Suspect]
     Indication: RHABDOMYOSARCOMA
     Dates: start: 19960601
  5. ENDOXAN [Suspect]
     Indication: RHABDOMYOSARCOMA
     Dates: start: 19960601
  6. COSMEGEN [Suspect]
     Indication: RHABDOMYOSARCOMA
     Dates: start: 19960601

REACTIONS (1)
  - BONE SARCOMA [None]
